FAERS Safety Report 18097518 (Version 1)
Quarter: 2020Q3

REPORT INFORMATION
  Report Type: Spontaneous
  Country: DE (occurrence: DE)
  Receive Date: 20200731
  Receipt Date: 20200731
  Transmission Date: 20201103
  Serious: No
  Sender: FDA-Public Use
  Company Number: DE-HORMOSAN PHARMA GMBH-2019-08768

PATIENT
  Sex: Female

DRUGS (5)
  1. LEVETIRACETAM?HORMOSAN 1000 MG FILMTABLETTEN [Suspect]
     Active Substance: LEVETIRACETAM
     Indication: DEPRESSION
  2. LEVETIRACETAM?HORMOSAN 1000 MG FILMTABLETTEN [Suspect]
     Active Substance: LEVETIRACETAM
     Indication: TREMOR
     Dosage: 500 MILLIGRAM, QD (AROUND 2 YEARS AGO), QD (HALF A TABLET IN THE EVENINGS)
     Route: 048
  3. LEVETIRACETAM?HORMOSAN 1000 MG FILMTABLETTEN [Suspect]
     Active Substance: LEVETIRACETAM
     Indication: ANXIETY
  4. SERTRALINE [Concomitant]
     Active Substance: SERTRALINE HYDROCHLORIDE
     Indication: NERVOUS SYSTEM DISORDER
     Dosage: UNK
     Route: 065
  5. PROMETHAZINE [Concomitant]
     Active Substance: PROMETHAZINE HYDROCHLORIDE
     Indication: ANXIETY
     Dosage: UNK
     Route: 065

REACTIONS (10)
  - Weight decreased [Unknown]
  - Abdominal pain upper [Unknown]
  - Product use in unapproved indication [Unknown]
  - Confusional state [Unknown]
  - Tremor [Unknown]
  - Blepharospasm [Unknown]
  - Paranoia [Recovered/Resolved]
  - Fatigue [Unknown]
  - Thyroid disorder [Unknown]
  - Speech disorder [Recovered/Resolved]
